FAERS Safety Report 16710493 (Version 1)
Quarter: 2019Q4

REPORT INFORMATION
  Report Type: Spontaneous
  Country: US (occurrence: US)
  Receive Date: 20190815
  Receipt Date: 20190815
  Transmission Date: 20200122
  Serious: No
  Sender: FDA-Public Use
  Company Number: None

PATIENT
  Age: 65 Year
  Sex: Male
  Weight: 95.89 kg

DRUGS (8)
  1. XPOVIO [Suspect]
     Active Substance: SELINEXOR
     Indication: PLASMA CELL MYELOMA
     Dates: start: 20190809
  2. VALTREX [Concomitant]
     Active Substance: VALACYCLOVIR HYDROCHLORIDE
  3. VELCADE [Concomitant]
     Active Substance: BORTEZOMIB
  4. SOTALOL. [Concomitant]
     Active Substance: SOTALOL
  5. DEXAMETHASONE. [Concomitant]
     Active Substance: DEXAMETHASONE
  6. XARELTO [Concomitant]
     Active Substance: RIVAROXABAN
  7. ZOFRAN [Concomitant]
     Active Substance: ONDANSETRON HYDROCHLORIDE
  8. CALCIUM [Concomitant]
     Active Substance: CALCIUM

REACTIONS (1)
  - Nausea [None]

NARRATIVE: CASE EVENT DATE: 20190809
